FAERS Safety Report 23080981 (Version 2)
Quarter: 2023Q4

REPORT INFORMATION
  Report Type: Spontaneous
  Country: US (occurrence: US)
  Receive Date: 20231018
  Receipt Date: 20231020
  Transmission Date: 20240110
  Serious: Yes (Death, Life-Threatening, Hospitalization, Other)
  Sender: FDA-Public Use
  Company Number: US-PFIZER INC-PV202300166786

PATIENT
  Age: 68 Year
  Sex: Female

DRUGS (1)
  1. DOCETAXEL [Suspect]
     Active Substance: DOCETAXEL
     Indication: Non-small cell lung cancer metastatic
     Dosage: UNK UNK, CYCLIC

REACTIONS (4)
  - Cardiac arrest [Fatal]
  - Hypereosinophilic syndrome [Fatal]
  - Leukostasis syndrome [Fatal]
  - Multiple organ dysfunction syndrome [Fatal]
